FAERS Safety Report 4862920-3 (Version None)
Quarter: 2005Q4

REPORT INFORMATION
  Report Type: 
  Country: None (occurrence: None)
  Receive Date: 20051219
  Receipt Date: 20051206
  Transmission Date: 20060501
  Serious: Yes (Other)
  Sender: FDA-Public Use
  Company Number: 2005132934

PATIENT
  Age: 86 Year
  Sex: Male
  Weight: 87.9978 kg

DRUGS (4)
  1. DETROL LA [Suspect]
     Indication: HYPERTONIC BLADDER
     Dosage: 4 MG (4 MG, 1 IN 1 D), ORAL
     Route: 048
     Dates: start: 20040101, end: 20040108
  2. NOVOLOG [Concomitant]
  3. LANTUS [Concomitant]
  4. ACETAMINOPHEN [Concomitant]

REACTIONS (3)
  - CONDITION AGGRAVATED [None]
  - GALLBLADDER OPERATION [None]
  - HYPERTONIC BLADDER [None]
